FAERS Safety Report 9824157 (Version 1)
Quarter: 2014Q1

REPORT INFORMATION
  Report Type: Spontaneous
  Country: US (occurrence: US)
  Receive Date: 20140116
  Receipt Date: 20140116
  Transmission Date: 20141002
  Serious: Yes (Hospitalization)
  Sender: FDA-Public Use
  Company Number: US-GLAXOSMITHKLINE-A1056197A

PATIENT
  Age: 58 Year
  Sex: Male

DRUGS (2)
  1. PROMACTA [Suspect]
     Indication: IMMUNE THROMBOCYTOPENIC PURPURA
     Dosage: 75MG PER DAY
     Route: 048
     Dates: start: 2013, end: 201401
  2. STEROIDS [Concomitant]

REACTIONS (3)
  - Investigation [Unknown]
  - Coronary artery disease [Unknown]
  - Platelet count increased [Not Recovered/Not Resolved]
